FAERS Safety Report 13740872 (Version 1)
Quarter: 2017Q3

REPORT INFORMATION
  Report Type: Spontaneous
  Country: US (occurrence: US)
  Receive Date: 20170710
  Receipt Date: 20170710
  Transmission Date: 20171127
  Serious: Yes (Life-Threatening, Hospitalization, Disabling, Other)
  Sender: FDA-Public Use
  Company Number: None

PATIENT
  Age: 56 Year
  Sex: Female
  Weight: 83.25 kg

DRUGS (2)
  1. DIAZEPAM. [Suspect]
     Active Substance: DIAZEPAM
     Indication: ANXIETY
     Dosage: ?          QUANTITY:0.15 .015 OF 1 ML;?
     Route: 048
     Dates: start: 20130101
  2. DIAZEPAM. [Suspect]
     Active Substance: DIAZEPAM
     Indication: SLEEP DISORDER
     Dosage: ?          QUANTITY:0.15 .015 OF 1 ML;?
     Route: 048
     Dates: start: 20130101

REACTIONS (59)
  - Mania [None]
  - Drug ineffective [None]
  - Pain [None]
  - Neck pain [None]
  - Multiple allergies [None]
  - Type 2 diabetes mellitus [None]
  - Temporomandibular joint syndrome [None]
  - Lymphadenopathy [None]
  - Insomnia [None]
  - Food intolerance [None]
  - Cervical spinal stenosis [None]
  - Postural orthostatic tachycardia syndrome [None]
  - Balance disorder [None]
  - Blood pressure fluctuation [None]
  - Dry mouth [None]
  - Skin disorder [None]
  - Adrenal insufficiency [None]
  - Internal haemorrhage [None]
  - Tooth disorder [None]
  - Lip swelling [None]
  - Cough [None]
  - Swelling face [None]
  - Anxiety [None]
  - Irritable bowel syndrome [None]
  - Gastrooesophageal reflux disease [None]
  - Product substitution issue [None]
  - Drug tolerance [None]
  - Lumbar spinal stenosis [None]
  - General physical health deterioration [None]
  - Hypertension [None]
  - Oxygen saturation decreased [None]
  - Drug hypersensitivity [None]
  - Multi-organ disorder [None]
  - Post-traumatic stress disorder [None]
  - Tachycardia [None]
  - Hernia repair [None]
  - Visual impairment [None]
  - Swollen tongue [None]
  - Swelling [None]
  - Weight decreased [None]
  - Neuralgia [None]
  - Sleep apnoea syndrome [None]
  - Anaphylactic reaction [None]
  - Eye disorder [None]
  - Immunosuppression [None]
  - Abdominal distension [None]
  - Helicobacter infection [None]
  - Fibromyalgia [None]
  - Vertigo [None]
  - Ulcer [None]
  - Lymph gland infection [None]
  - Dizziness [None]
  - Dyspnoea [None]
  - Anaemia [None]
  - Weight increased [None]
  - Peripheral swelling [None]
  - Candida infection [None]
  - Back pain [None]
  - Gastrointestinal disorder [None]

NARRATIVE: CASE EVENT DATE: 20130101
